FAERS Safety Report 20570582 (Version 9)
Quarter: 2024Q2

REPORT INFORMATION
  Report Type: Spontaneous
  Country: US (occurrence: US)
  Receive Date: 20220309
  Receipt Date: 20240628
  Transmission Date: 20240716
  Serious: Yes (Hospitalization, Disabling, Other)
  Sender: FDA-Public Use
  Company Number: US-ORGANON-O2203USA000783

PATIENT
  Sex: Male
  Weight: 138.32 kg

DRUGS (10)
  1. SINGULAIR [Suspect]
     Active Substance: MONTELUKAST SODIUM
     Indication: Asthma
     Dosage: 10 MG PO AT HS
     Route: 048
     Dates: start: 1998
  2. SINGULAIR [Suspect]
     Active Substance: MONTELUKAST SODIUM
     Indication: Hypersensitivity
     Dosage: 1 DOSAGE FORM, EVERYDAY IN THE EVENING
     Route: 048
     Dates: start: 20210401
  3. SINGULAIR [Suspect]
     Active Substance: MONTELUKAST SODIUM
     Dosage: 1 DOSAGE FORM, QD IN THE EVENING
     Route: 048
     Dates: start: 20210401, end: 202205
  4. SINGULAIR [Suspect]
     Active Substance: MONTELUKAST SODIUM
     Dosage: 1 TABLET, EVERYDAY (QD) IN THE EVENING
     Route: 048
     Dates: start: 20210401, end: 20211012
  5. SINGULAIR [Suspect]
     Active Substance: MONTELUKAST SODIUM
     Dosage: 1 TABLET, EVERYDAY (QD) IN THE EVENING
     Route: 048
     Dates: start: 20211012, end: 20220110
  6. SINGULAIR [Suspect]
     Active Substance: MONTELUKAST SODIUM
     Dosage: 1 TABLET, EVERYDAY (QD) IN THE EVENING
     Route: 048
     Dates: start: 20220110, end: 20220310
  7. SINGULAIR [Suspect]
     Active Substance: MONTELUKAST SODIUM
     Dosage: 1 TABLET, EVERYDAY (QD) IN THE EVENING
     Route: 048
     Dates: start: 20220310, end: 20220523
  8. SINGULAIR [Suspect]
     Active Substance: MONTELUKAST SODIUM
     Dosage: 1 TABLET, EVERYDAY (QD) IN THE EVENING
     Route: 048
     Dates: start: 20220523, end: 20220729
  9. SINGULAIR [Suspect]
     Active Substance: MONTELUKAST SODIUM
     Dosage: 1 TABLET, EVERYDAY (QD) IN THE EVENING
     Route: 048
     Dates: start: 20220729, end: 20221109
  10. SINGULAIR [Suspect]
     Active Substance: MONTELUKAST SODIUM
     Dosage: 1 TABLET, EVERYDAY (QD)
     Route: 048
     Dates: start: 20230518, end: 20230518

REACTIONS (48)
  - Major depression [Not Recovered/Not Resolved]
  - Cyclothymic disorder [Unknown]
  - Behaviour disorder [Unknown]
  - Attention deficit hyperactivity disorder [Unknown]
  - Paranoia [Not Recovered/Not Resolved]
  - Impulse-control disorder [Unknown]
  - Adjustment disorder with disturbance of conduct [Recovering/Resolving]
  - Anger [Recovering/Resolving]
  - Aggression [Not Recovered/Not Resolved]
  - Sleep disorder [Not Recovered/Not Resolved]
  - Dysphemia [Not Recovered/Not Resolved]
  - Hostility [Not Recovered/Not Resolved]
  - Back injury [Unknown]
  - Neuropsychological symptoms [Not Recovered/Not Resolved]
  - Suicidal ideation [Not Recovered/Not Resolved]
  - Skull fracture [Unknown]
  - Radius fracture [Unknown]
  - Depression [Unknown]
  - Road traffic accident [Unknown]
  - Concussion [Unknown]
  - Fall [Unknown]
  - Obesity [Unknown]
  - Chest pain [Unknown]
  - Tension headache [Unknown]
  - Lower respiratory tract congestion [Unknown]
  - Cough [Recovered/Resolved]
  - Headache [Unknown]
  - Irritability [Unknown]
  - Somnolence [Unknown]
  - Asthma [Not Recovered/Not Resolved]
  - Anxiety [Unknown]
  - Back pain [Not Recovered/Not Resolved]
  - Pain in extremity [Unknown]
  - Intervertebral disc degeneration [Unknown]
  - Lumbar spinal stenosis [Unknown]
  - Spinal osteoarthritis [Unknown]
  - Intervertebral disc displacement [Unknown]
  - Pain [Unknown]
  - Intervertebral disc protrusion [Unknown]
  - Urinary incontinence [Unknown]
  - Haematuria [Unknown]
  - Sciatica [Unknown]
  - Chest discomfort [Unknown]
  - Productive cough [Unknown]
  - Wheezing [Unknown]
  - Throat irritation [Unknown]
  - Product prescribing issue [Unknown]
  - Incorrect dose administered [Unknown]

NARRATIVE: CASE EVENT DATE: 19980101
